FAERS Safety Report 6506412-4 (Version None)
Quarter: 2009Q4

REPORT INFORMATION
  Report Type: 
  Country: None (occurrence: None)
  Receive Date: 20091220
  Receipt Date: 20091216
  Transmission Date: 20100525
  Serious: Yes (Hospitalization)
  Sender: FDA-Public Use
  Company Number: ES-BRISTOL-MYERS SQUIBB COMPANY-14896153

PATIENT
  Age: 44 Year
  Sex: Male

DRUGS (4)
  1. REYATAZ [Suspect]
     Indication: HIV INFECTION
     Dosage: 60CAPSULE
     Route: 048
     Dates: start: 20080101, end: 20081110
  2. COMBIVIR [Suspect]
     Indication: HIV INFECTION
     Dosage: 150/300MG 60COATED TABS
     Route: 048
     Dates: start: 20080101, end: 20081110
  3. SEPTRIN FORTE [Suspect]
     Indication: ANTIFUNGAL PROPHYLAXIS
     Dosage: TABS
     Route: 048
     Dates: start: 20080101, end: 20081110
  4. METADON [Concomitant]
     Indication: DRUG DEPENDENCE
     Route: 048

REACTIONS (1)
  - HEPATITIS CHOLESTATIC [None]
